FAERS Safety Report 24575774 (Version 1)
Quarter: 2024Q4

REPORT INFORMATION
  Report Type: Spontaneous
  Country: IT (occurrence: IT)
  Receive Date: 20241104
  Receipt Date: 20241104
  Transmission Date: 20250114
  Serious: Yes (Other)
  Sender: INSUD PHARMA
  Company Number: None

PATIENT
  Age: 32 Year
  Sex: Female

DRUGS (2)
  1. DROSPIRENONE [Suspect]
     Active Substance: DROSPIRENONE
     Indication: Hormone therapy
     Dosage: UNK
     Route: 048
     Dates: start: 202107, end: 202404
  2. DROSPIRENONE [Suspect]
     Active Substance: DROSPIRENONE
     Indication: Menstrual disorder

REACTIONS (4)
  - Loss of libido [Recovered/Resolved]
  - Vulvovaginal dryness [Recovered/Resolved]
  - Genito-pelvic pain/penetration disorder [Recovered/Resolved]
  - Vaginal haemorrhage [Recovered/Resolved]

NARRATIVE: CASE EVENT DATE: 20220801
